FAERS Safety Report 8228207-6 (Version None)
Quarter: 2012Q1

REPORT INFORMATION
  Report Type: 
  Country: None (occurrence: None)
  Receive Date: 20120322
  Receipt Date: 20111207
  Transmission Date: 20120608
  Serious: Yes (Other)
  Sender: FDA-Public Use
  Company Number: US-BRISTOL-MYERS SQUIBB COMPANY-16276966

PATIENT
  Age: 48 Year
  Sex: Male

DRUGS (8)
  1. FLUOROURACIL [Concomitant]
     Indication: TONGUE NEOPLASM MALIGNANT STAGE UNSPECIFIED
     Dates: start: 20111007
  2. CISPLATIN [Concomitant]
     Indication: TONGUE NEOPLASM MALIGNANT STAGE UNSPECIFIED
     Dates: start: 20111007
  3. ERBITUX [Suspect]
     Indication: TONSIL CANCER
     Dates: start: 20111007
  4. TAXOTERE [Concomitant]
     Indication: TONSIL CANCER
     Dates: start: 20111007
  5. TAXOTERE [Concomitant]
     Indication: TONGUE NEOPLASM MALIGNANT STAGE UNSPECIFIED
     Dates: start: 20111007
  6. FLUOROURACIL [Concomitant]
     Indication: TONSIL CANCER
     Dates: start: 20111007
  7. ERBITUX [Suspect]
     Indication: TONGUE NEOPLASM MALIGNANT STAGE UNSPECIFIED
     Dates: start: 20111007
  8. CISPLATIN [Concomitant]
     Indication: TONSIL CANCER
     Dates: start: 20111007

REACTIONS (1)
  - NEOPLASM MALIGNANT [None]
